FAERS Safety Report 9174004 (Version 1)
Quarter: 2013Q1

REPORT INFORMATION
  Report Type: Spontaneous
  Country: US (occurrence: US)
  Receive Date: 20130320
  Receipt Date: 20130320
  Transmission Date: 20140127
  Serious: Yes (Hospitalization, Other)
  Sender: FDA-Public Use
  Company Number: US-PFIZER INC-2013088039

PATIENT
  Age: 54 Year
  Sex: Female

DRUGS (6)
  1. EFFEXOR XR [Suspect]
     Indication: DEPRESSION
     Dosage: 225 MG, 1X/DAY
     Route: 048
  2. ZOLOFT [Suspect]
     Indication: DEPRESSION
     Dosage: UNK
  3. VENLAFAXINE HYDROCHLORIDE [Suspect]
     Indication: DEPRESSION
     Dosage: UNK
     Route: 048
  4. PAXIL [Suspect]
     Indication: DEPRESSION
     Dosage: UNK
  5. CYMBALTA [Suspect]
     Indication: DEPRESSION
     Dosage: UNK
  6. DIAZEPAM [Concomitant]
     Indication: ANXIETY
     Dosage: UNK

REACTIONS (6)
  - Ulcer haemorrhage [Recovering/Resolving]
  - Full blood count decreased [Recovered/Resolved]
  - Drug ineffective [Unknown]
  - Blood potassium decreased [Recovered/Resolved]
  - Vomiting [Unknown]
  - Product solubility abnormal [Unknown]
